FAERS Safety Report 14979283 (Version 1)
Quarter: 2018Q2

REPORT INFORMATION
  Report Type: Spontaneous
  Country: US (occurrence: US)
  Receive Date: 20180606
  Receipt Date: 20180606
  Transmission Date: 20180711
  Serious: No
  Sender: FDA-Public Use
  Company Number: US-BAYER-2018-106217

PATIENT
  Sex: Female

DRUGS (2)
  1. ESTRADIOL HEMIHYDRATE + LEVONORGESTREL [Suspect]
     Active Substance: ESTRADIOL HEMIHYDRATE\LEVONORGESTREL
     Route: 062
  2. CLIMARA PRO [Suspect]
     Active Substance: ESTRADIOL\LEVONORGESTREL
     Dosage: UNK
     Route: 062

REACTIONS (3)
  - Inappropriate schedule of drug administration [None]
  - Product physical issue [None]
  - Drug ineffective [None]
